FAERS Safety Report 23253174 (Version 1)
Quarter: 2023Q4

REPORT INFORMATION
  Report Type: Spontaneous
  Country: FR (occurrence: FR)
  Receive Date: 20231202
  Receipt Date: 20231202
  Transmission Date: 20240109
  Serious: Yes (Other)
  Sender: FDA-Public Use
  Company Number: FR-AFSSAPS-NY2023001604

PATIENT
  Age: 72 Year
  Sex: Male
  Weight: 72 kg

DRUGS (6)
  1. ACETAMINOPHEN [Suspect]
     Active Substance: ACETAMINOPHEN
     Indication: Headache
     Dosage: 25 GRAM
     Route: 048
     Dates: start: 20230929, end: 20231002
  2. Daflon [Concomitant]
     Indication: Abdominal pain
     Dosage: 1 DOSAGE FORM
     Route: 048
     Dates: start: 20230929
  3. ROSUVASTATIN [Concomitant]
     Active Substance: ROSUVASTATIN
     Indication: Dyslipidaemia
     Dosage: 5 MILLIGRAM, ONCE A DAY (0-0-1)
     Route: 048
  4. TRAMADOL HYDROCHLORIDE [Concomitant]
     Active Substance: TRAMADOL HYDROCHLORIDE
     Indication: Pain
     Dosage: 1 DOSAGE FORM, ONCE A DAY (1-0-0)
     Route: 048
  5. Digedryl [Concomitant]
     Indication: Abdominal pain
     Dosage: 1 DOSAGE FORM
     Route: 048
     Dates: start: 20230929
  6. CHOLECALCIFEROL [Concomitant]
     Active Substance: CHOLECALCIFEROL
     Indication: Vitamin supplementation
     Dosage: 1 DOSAGE FORM
     Route: 048

REACTIONS (3)
  - Hepatic cytolysis [Not Recovered/Not Resolved]
  - Purpura [Not Recovered/Not Resolved]
  - Rash pruritic [Not Recovered/Not Resolved]

NARRATIVE: CASE EVENT DATE: 20231001
